FAERS Safety Report 4631353-7 (Version None)
Quarter: 2005Q2

REPORT INFORMATION
  Report Type: 
  Country: None (occurrence: None)
  Receive Date: 20050406
  Receipt Date: 20050322
  Transmission Date: 20051028
  Serious: Yes (Hospitalization)
  Sender: FDA-Public Use
  Company Number: 2005BI006496

PATIENT
  Age: 30 Year
  Sex: Female
  Weight: 99.7913 kg

DRUGS (2)
  1. AVONEX [Suspect]
     Indication: MULTIPLE SCLEROSIS
     Dosage: 30 UG; QW; IM
     Route: 030
     Dates: start: 20040901
  2. DOCUSATE SODIUM [Concomitant]

REACTIONS (9)
  - ARTHRALGIA [None]
  - CONDITION AGGRAVATED [None]
  - DEPRESSION [None]
  - GAIT DISTURBANCE [None]
  - MEDICATION ERROR [None]
  - MULTIPLE SCLEROSIS [None]
  - MUSCLE INJURY [None]
  - MUSCULOSKELETAL STIFFNESS [None]
  - NERVE INJURY [None]
